FAERS Safety Report 15476799 (Version 1)
Quarter: 2018Q4

REPORT INFORMATION
  Report Type: Spontaneous
  Country: CH (occurrence: CH)
  Receive Date: 20181009
  Receipt Date: 20181009
  Transmission Date: 20190205
  Serious: Yes (Other)
  Sender: FDA-Public Use
  Company Number: CH-BAXTER-2018BAX025260

PATIENT
  Sex: Female

DRUGS (2)
  1. ENDOXAN 1 G. TROCKENSUBSTANZ ZUR INTRAVEN?SEN INFUSION [Suspect]
     Active Substance: CYCLOPHOSPHAMIDE
     Indication: PRODUCT USED FOR UNKNOWN INDICATION
     Dosage: 4 CYCLES OF ADJUVANT CHEMOTHERAPY
     Route: 065
     Dates: start: 20141010, end: 20141211
  2. ADRIAMYCIN [Suspect]
     Active Substance: DOXORUBICIN HYDROCHLORIDE
     Indication: PRODUCT USED FOR UNKNOWN INDICATION
     Dosage: 4 CYCLES OF ADJUVANT CHEMOTHERAPY
     Route: 065
     Dates: start: 20141010, end: 20141211

REACTIONS (2)
  - Metastases to liver [Unknown]
  - Metastases to bone [Unknown]
